FAERS Safety Report 6444312-9 (Version None)
Quarter: 2009Q4

REPORT INFORMATION
  Report Type: 
  Country: None (occurrence: None)
  Receive Date: 20091118
  Receipt Date: 20091106
  Transmission Date: 20100525
  Serious: Yes (Hospitalization)
  Sender: FDA-Public Use
  Company Number: PHHY2009JP48020

PATIENT
  Sex: Female
  Weight: 43 kg

DRUGS (9)
  1. LAMISIL [Suspect]
     Dosage: 125 MG DAILY
     Route: 048
     Dates: start: 20090507, end: 20091015
  2. ENDOXAN [Suspect]
     Dosage: UNK
     Dates: start: 20000101
  3. PREDONINE [Concomitant]
     Indication: THYMOMA
     Dosage: 15 DF, UNK
     Route: 048
     Dates: start: 20060608
  4. PREDONINE [Concomitant]
     Dosage: 40 MG PER DAY
     Dates: start: 20091102
  5. BAKTAR [Concomitant]
     Indication: FUNGAL INFECTION
     Dosage: 4 DF, UNK
     Route: 048
     Dates: start: 20070302
  6. BENET [Concomitant]
     Indication: OSTEOPOROSIS
     Dosage: 17.5 DF, UNK
     Route: 048
  7. GASLON [Concomitant]
     Indication: GASTRITIS
     Dosage: 4 DF, UNK
     Route: 048
     Dates: start: 20060608
  8. VISCORIN [Concomitant]
     Dosage: 3 G, UNK
     Route: 048
     Dates: start: 20080501
  9. MICONAZOLE NITRATE [Concomitant]
     Indication: ORAL CANDIDIASIS
     Dosage: 10 G, UNK
     Dates: start: 20081016

REACTIONS (8)
  - BLOOD ALKALINE PHOSPHATASE INCREASED [None]
  - BLOOD LACTATE DEHYDROGENASE INCREASED [None]
  - BODY TEMPERATURE INCREASED [None]
  - DYSPNOEA [None]
  - GAMMA-GLUTAMYLTRANSFERASE INCREASED [None]
  - INTERSTITIAL LUNG DISEASE [None]
  - LUNG DISORDER [None]
  - OPPORTUNISTIC INFECTION [None]
